FAERS Safety Report 6909049-8 (Version None)
Quarter: 2010Q3

REPORT INFORMATION
  Report Type: 
  Country: None (occurrence: None)
  Receive Date: 20100803
  Receipt Date: 20100721
  Transmission Date: 20110219
  Serious: Yes (Other)
  Sender: FDA-Public Use
  Company Number: 8047227

PATIENT
  Sex: Female
  Weight: 54.5 kg

DRUGS (4)
  1. CERTOLIZUMAB PEGOL [Suspect]
     Indication: CROHN'S DISEASE
     Dosage: 400 MG MISSED ONE DOSE SUBCUTANEOUS
     Route: 058
     Dates: start: 20090217
  2. PREDNISONE [Concomitant]
  3. OXYCODONE [Concomitant]
  4. NEXIUM [Concomitant]

REACTIONS (3)
  - DRUG EXPOSURE DURING PREGNANCY [None]
  - PREGNANCY [None]
  - PREMATURE LABOUR [None]
